FAERS Safety Report 25382092 (Version 1)
Quarter: 2025Q2

REPORT INFORMATION
  Report Type: Spontaneous
  Country: US (occurrence: US)
  Receive Date: 20250531
  Receipt Date: 20250531
  Transmission Date: 20250717
  Serious: Yes (Hospitalization, Other)
  Sender: NATCO PHARMA
  Company Number: US-NATCO-000032

PATIENT
  Age: 10 Year
  Sex: Female

DRUGS (1)
  1. ALBUTEROL [Suspect]
     Active Substance: ALBUTEROL
     Indication: Asthma
     Route: 065

REACTIONS (8)
  - Myotonia [Recovered/Resolved]
  - Respiratory failure [Recovered/Resolved]
  - Metabolic acidosis [Unknown]
  - Hyperthermia [Recovered/Resolved]
  - Rhabdomyolysis [Recovered/Resolved]
  - Blood creatine phosphokinase increased [Recovered/Resolved]
  - Hyperkalaemia [Unknown]
  - Tachycardia [Recovered/Resolved]
